FAERS Safety Report 23139218 (Version 1)
Quarter: 2023Q4

REPORT INFORMATION
  Report Type: Spontaneous
  Country: US (occurrence: None)
  Receive Date: 20231101
  Receipt Date: 20231101
  Transmission Date: 20240110
  Serious: Yes (Hospitalization, Disabling, Other)
  Sender: FDA-Public Use
  Company Number: None

PATIENT
  Age: 73 Year
  Sex: Female
  Weight: 67.5 kg

DRUGS (3)
  1. LEVOFLOXACIN [Suspect]
     Active Substance: LEVOFLOXACIN
     Indication: Pneumonia
     Dosage: OTHER QUANTITY : 10 TABLET(S);?FREQUENCY : DAILY;?
     Route: 048
     Dates: start: 20180507, end: 20180516
  2. BRIMONIDINE [Concomitant]
     Active Substance: BRIMONIDINE TARTRATE
  3. IRON [Concomitant]
     Active Substance: IRON

REACTIONS (20)
  - General physical health deterioration [None]
  - Back pain [None]
  - Peripheral swelling [None]
  - Blood pressure increased [None]
  - Anaemia [None]
  - Laboratory test abnormal [None]
  - Toxicity to various agents [None]
  - Bone demineralisation [None]
  - Spinal compression fracture [None]
  - Fibromyalgia [None]
  - Fatigue [None]
  - Tendon disorder [None]
  - Autoimmune disorder [None]
  - Hyperkeratosis [None]
  - Gastrointestinal disorder [None]
  - Abdominal distension [None]
  - Psoriasis [None]
  - Endovenous ablation [None]
  - Ephelides [None]
  - Dyspnoea exertional [None]

NARRATIVE: CASE EVENT DATE: 20180507
